FAERS Safety Report 7773658-7 (Version None)
Quarter: 2011Q3

REPORT INFORMATION
  Report Type: 
  Country: None (occurrence: None)
  Receive Date: 20110923
  Receipt Date: 20110921
  Transmission Date: 20111222
  Serious: Yes (Hospitalization, Other)
  Sender: FDA-Public Use
  Company Number: AT-BRISTOL-MYERS SQUIBB COMPANY-15724636

PATIENT
  Age: 43 Year
  Sex: Male

DRUGS (4)
  1. FLUNITRAZEPAM [Concomitant]
  2. ATAZANAVIR [Suspect]
     Indication: HIV INFECTION
     Dosage: INTERRUPTED ON 12APR2011 RESTARTED ON 05MAY2011
     Route: 048
     Dates: start: 20101019, end: 20110412
  3. MORPHINE SULFATE [Concomitant]
  4. TRUVADA [Suspect]
     Indication: HIV INFECTION
     Dosage: INTERRUPTED ON 12APR2011 RESTARTED ON 5MAY2011
     Route: 048
     Dates: start: 20101019, end: 20110412

REACTIONS (2)
  - ENTEROBACTER SEPSIS [None]
  - TUBULOINTERSTITIAL NEPHRITIS [None]
